FAERS Safety Report 23124996 (Version 1)
Quarter: 2023Q4

REPORT INFORMATION
  Report Type: Spontaneous
  Country: US (occurrence: None)
  Receive Date: 20231030
  Receipt Date: 20231030
  Transmission Date: 20240109
  Serious: Yes (Death)
  Sender: FDA-Public Use
  Company Number: None

PATIENT
  Age: 71 Year
  Sex: Male
  Weight: 74.4 kg

DRUGS (1)
  1. CABENUVA [Suspect]
     Active Substance: CABOTEGRAVIR\RILPIVIRINE
     Indication: HIV infection
     Dosage: OTHER QUANTITY : 600-900 MG;?OTHER FREQUENCY : EVERY 60 DAYS;?
     Route: 030
     Dates: start: 20220719, end: 20230628

REACTIONS (1)
  - Death [None]

NARRATIVE: CASE EVENT DATE: 20231019
